FAERS Safety Report 13427667 (Version 3)
Quarter: 2017Q2

REPORT INFORMATION
  Report Type: Spontaneous
  Country: US (occurrence: US)
  Receive Date: 20170411
  Receipt Date: 20170520
  Transmission Date: 20170830
  Serious: Yes (Other)
  Sender: FDA-Public Use
  Company Number: US-AUROBINDO-AUR-APL-2017-32369

PATIENT
  Age: 55 Year
  Sex: Male

DRUGS (1)
  1. LAMOTRIGINE. [Suspect]
     Active Substance: LAMOTRIGINE
     Indication: SEIZURE
     Dosage: UNK
     Route: 065
     Dates: start: 2016

REACTIONS (9)
  - Rash generalised [Unknown]
  - Fatigue [Unknown]
  - Malaise [Unknown]
  - Chills [Unknown]
  - Blood creatinine increased [Unknown]
  - Transaminases increased [Unknown]
  - Pyrexia [Unknown]
  - Drug reaction with eosinophilia and systemic symptoms [Recovering/Resolving]
  - Retinal pigment epitheliopathy [Recovering/Resolving]
